FAERS Safety Report 8379387-3 (Version None)
Quarter: 2012Q1

REPORT INFORMATION
  Report Type: 
  Country: None (occurrence: None)
  Receive Date: 20120323
  Receipt Date: 20110418
  Transmission Date: 20120608
  Serious: Yes (Other)
  Sender: FDA-Public Use
  Company Number: 163-21880-11032070

PATIENT
  Age: 87 Year
  Sex: Male

DRUGS (8)
  1. CELEXA (CITALOPRAM HYDROBROMIDE) (UNKNOWN) [Concomitant]
  2. LASIX [Concomitant]
  3. LEVOTHYROXINE SODIUM [Concomitant]
  4. ALDACTONE (SPIRONOLACTONE) (UNKNOWN) [Concomitant]
  5. COZAAR [Concomitant]
  6. COREG [Concomitant]
  7. REVLIMID [Suspect]
     Indication: MULTIPLE MYELOMA
     Dosage: 25 MG, DAILY X 21 DAYS, PO
     Route: 048
     Dates: start: 20110228, end: 20110311
  8. ASPIRIN [Concomitant]

REACTIONS (2)
  - HYPERSENSITIVITY [None]
  - ERYTHEMA MULTIFORME [None]
